FAERS Safety Report 7661685-X (Version None)
Quarter: 2011Q3

REPORT INFORMATION
  Report Type: 
  Country: None (occurrence: None)
  Receive Date: 20110805
  Receipt Date: 20101119
  Transmission Date: 20111222
  Serious: No
  Sender: FDA-Public Use
  Company Number: US-ABBOTT-10P-163-0686633-00

PATIENT
  Sex: Female
  Weight: 83.99 kg

DRUGS (1)
  1. NIASPAN [Suspect]
     Indication: HYPERLIPIDAEMIA
     Dates: start: 20090901

REACTIONS (4)
  - BURNING SENSATION [None]
  - PARAESTHESIA [None]
  - FLUSHING [None]
  - MIDDLE INSOMNIA [None]
